FAERS Safety Report 22242019 (Version 2)
Quarter: 2024Q3

REPORT INFORMATION
  Report Type: Report from Study
  Country: US (occurrence: US)
  Receive Date: 20230421
  Receipt Date: 20240826
  Transmission Date: 20241017
  Serious: Yes (Other)
  Sender: NOVARTIS
  Company Number: US-002147023-NVSC2023US090960

PATIENT
  Sex: Female
  Weight: 85.714 kg

DRUGS (1)
  1. ENTRESTO [Suspect]
     Active Substance: SACUBITRIL\VALSARTAN
     Indication: Cardiac failure
     Dosage: 1 DOSAGE FORM, BID (97103 MG)
     Route: 065

REACTIONS (3)
  - Cataract [Unknown]
  - Blood pressure abnormal [Unknown]
  - Weight increased [Unknown]
